FAERS Safety Report 18229493 (Version 1)
Quarter: 2020Q3

REPORT INFORMATION
  Report Type: Spontaneous
  Country: US (occurrence: US)
  Receive Date: 20200903
  Receipt Date: 20200903
  Transmission Date: 20201103
  Serious: No
  Sender: FDA-Public Use
  Company Number: US-GALDERMA-US2020022432

PATIENT
  Sex: Female

DRUGS (1)
  1. CLOBETASOL PROPIONATE (CLOBETASOL PROPIONATE) LOTION [Suspect]
     Active Substance: CLOBETASOL PROPIONATE
     Indication: PRURITUS
     Dosage: 0.05%
     Route: 061

REACTIONS (2)
  - Product use in unapproved indication [Recovered/Resolved]
  - Drug ineffective for unapproved indication [Recovered/Resolved]
